FAERS Safety Report 23713126 (Version 3)
Quarter: 2024Q2

REPORT INFORMATION
  Report Type: Report from Study
  Country: JP (occurrence: JP)
  Receive Date: 20240405
  Receipt Date: 20240624
  Transmission Date: 20240716
  Serious: Yes (Other)
  Sender: FDA-Public Use
  Company Number: JP-RADIUS HEALTH INC.-2023JP003974

PATIENT
  Age: 80 Year
  Sex: Female

DRUGS (1)
  1. ABALOPARATIDE [Suspect]
     Active Substance: ABALOPARATIDE
     Indication: Product used for unknown indication
     Dosage: 80 MICROGRAM
     Route: 058
     Dates: start: 202305

REACTIONS (7)
  - Injection site haemorrhage [Unknown]
  - Injection site erythema [Unknown]
  - Blood pressure decreased [Unknown]
  - Bradycardia [Unknown]
  - Injection site urticaria [Unknown]
  - Injection site pruritus [Recovered/Resolved]
  - Injection site pain [Unknown]

NARRATIVE: CASE EVENT DATE: 20240326
